FAERS Safety Report 19072105 (Version 1)
Quarter: 2021Q1

REPORT INFORMATION
  Report Type: Spontaneous
  Country: US (occurrence: US)
  Receive Date: 20210329
  Receipt Date: 20210329
  Transmission Date: 20210420
  Serious: Yes (Disabling)
  Sender: FDA-Public Use
  Company Number: None

PATIENT
  Age: 63 Year
  Sex: Male
  Weight: 58.5 kg

DRUGS (4)
  1. D3 VITAMIINI [Concomitant]
     Active Substance: CHOLECALCIFEROL
  2. VYEPTI [Suspect]
     Active Substance: EPTINEZUMAB-JJMR
     Indication: MIGRAINE
     Dosage: ?          OTHER FREQUENCY:ONCE EVERY THREE M;OTHER ROUTE:IV?
     Dates: start: 20200815, end: 20210222
  3. ABEIAN [Concomitant]
  4. PROBIOTIC [Concomitant]
     Active Substance: PROBIOTICS NOS

REACTIONS (2)
  - Insomnia [None]
  - Nasopharyngitis [None]

NARRATIVE: CASE EVENT DATE: 20210326
